FAERS Safety Report 20706824 (Version 2)
Quarter: 2022Q2

REPORT INFORMATION
  Report Type: Spontaneous
  Country: JP (occurrence: JP)
  Receive Date: 20220413
  Receipt Date: 20220505
  Transmission Date: 20220721
  Serious: Yes (Hospitalization, Other)
  Sender: FDA-Public Use
  Company Number: JP-ferring-EVA202200398FERRINGPH

PATIENT

DRUGS (1)
  1. DESMOPRESSIN ACETATE [Suspect]
     Active Substance: DESMOPRESSIN ACETATE
     Indication: Diabetes insipidus
     Dosage: 120 UG, 1 TIME DAILY
     Route: 065

REACTIONS (4)
  - Renal impairment [Unknown]
  - Fracture [Unknown]
  - Labelled drug-disease interaction medication error [Unknown]
  - Contraindicated product administered [Unknown]
